FAERS Safety Report 10495609 (Version 6)
Quarter: 2015Q4

REPORT INFORMATION
  Report Type: Report from Study
  Country: VE (occurrence: VE)
  Receive Date: 20141003
  Receipt Date: 20151007
  Transmission Date: 20160304
  Serious: Yes (Hospitalization, Other)
  Sender: FDA-Public Use
  Company Number: PHHY2014VE128596

PATIENT
  Sex: Female

DRUGS (13)
  1. SANDOSTATIN LAR DEPOT [Suspect]
     Active Substance: OCTREOTIDE ACETATE
     Dosage: 40 MG, QMO
     Route: 030
     Dates: start: 201506
  2. EUTIROX [Concomitant]
     Active Substance: LEVOTHYROXINE SODIUM
     Indication: THYROID DISORDER
     Dosage: 150 MG, QD
     Route: 065
     Dates: start: 2012, end: 20140928
  3. EUTIROX [Concomitant]
     Active Substance: LEVOTHYROXINE SODIUM
     Dosage: QD
     Route: 048
     Dates: start: 2013
  4. ATACAND [Concomitant]
     Active Substance: CANDESARTAN CILEXETIL
     Indication: HYPERTENSION
     Dosage: 16 MG, QD
     Route: 048
     Dates: start: 2010, end: 20140929
  5. SIMPLA [Concomitant]
     Indication: OSTEOPOROSIS
     Dosage: 1 DF, QMO
     Route: 048
  6. JANUMET [Concomitant]
     Active Substance: METFORMIN HYDROCHLORIDE\SITAGLIPTIN PHOSPHATE
     Indication: BLOOD GLUCOSE ABNORMAL
     Dosage: 1 DF (50/1000 MG), QD
     Route: 065
  7. SANDOSTATIN LAR DEPOT [Suspect]
     Active Substance: OCTREOTIDE ACETATE
     Indication: ACROMEGALY
     Dosage: 20 MG, EVERY 20 DAYS
     Route: 030
     Dates: start: 20121123, end: 20140916
  8. JANUMET [Concomitant]
     Active Substance: METFORMIN HYDROCHLORIDE\SITAGLIPTIN PHOSPHATE
     Indication: GLUCOSE TOLERANCE IMPAIRED
  9. SANDOSTATIN LAR DEPOT [Suspect]
     Active Substance: OCTREOTIDE ACETATE
     Dosage: 30 MG, EVERY 20 DAYS
     Route: 030
     Dates: start: 20140916
  10. SANDOSTATIN LAR DEPOT [Suspect]
     Active Substance: OCTREOTIDE ACETATE
     Dosage: 30 MG, QMO
     Route: 030
  11. SANDOSTATIN LAR DEPOT [Suspect]
     Active Substance: OCTREOTIDE ACETATE
     Dosage: 20 MG, QMO
     Route: 030
  12. GLUCOFAGE [Concomitant]
     Indication: GLUCOSE TOLERANCE IMPAIRED
     Dosage: 1.5 G, UNK
     Route: 048
     Dates: start: 201205, end: 20140928
  13. ATACAND [Concomitant]
     Active Substance: CANDESARTAN CILEXETIL
     Dosage: 1 U, QD
     Route: 048

REACTIONS (13)
  - Post procedural complication [Unknown]
  - Vocal cord disorder [Not Recovered/Not Resolved]
  - VIIth nerve paralysis [Recovering/Resolving]
  - Weight decreased [Unknown]
  - Dysphagia [Unknown]
  - Insomnia [Unknown]
  - Obesity [Unknown]
  - Papillary thyroid cancer [Recovering/Resolving]
  - Diabetes mellitus [Unknown]
  - Spinal cord herniation [Not Recovered/Not Resolved]
  - Monoparesis [Recovering/Resolving]
  - Arthralgia [Not Recovered/Not Resolved]
  - Choking [Unknown]
